FAERS Safety Report 13571887 (Version 1)
Quarter: 2017Q2

REPORT INFORMATION
  Report Type: Spontaneous
  Country: US (occurrence: US)
  Receive Date: 20170523
  Receipt Date: 20170523
  Transmission Date: 20170830
  Serious: No
  Sender: FDA-Public Use
  Company Number: US-DRREDDYS-USA/USA/16/0083619

PATIENT
  Age: 33 Year
  Sex: Female
  Weight: 47.6 kg

DRUGS (1)
  1. ZENATANE [Suspect]
     Active Substance: ISOTRETINOIN
     Indication: ACNE CYSTIC
     Route: 048
     Dates: start: 20160723

REACTIONS (4)
  - Visual impairment [Unknown]
  - Migraine [Recovered/Resolved]
  - Hypotension [Unknown]
  - Memory impairment [Unknown]

NARRATIVE: CASE EVENT DATE: 201609
